FAERS Safety Report 9584758 (Version 2)
Quarter: 2013Q4

REPORT INFORMATION
  Report Type: Spontaneous
  Country: US (occurrence: US)
  Receive Date: 20131002
  Receipt Date: 20131002
  Transmission Date: 20140711
  Serious: No
  Sender: FDA-Public Use
  Company Number: US-AMGEN-USASP2013041177

PATIENT
  Age: 14 Year
  Sex: Female
  Weight: 72.56 kg

DRUGS (3)
  1. ENBREL [Suspect]
     Indication: PRODUCT USED FOR UNKNOWN INDICATION
     Dosage: 50 MG, QWK
     Route: 058
  2. BIOTIN [Concomitant]
     Dosage: 5000 UNK, UNK
  3. D3 [Concomitant]
     Dosage: 400 UNIT, UNK

REACTIONS (2)
  - Fatigue [Unknown]
  - Photosensitivity reaction [Unknown]
